FAERS Safety Report 5031703-6 (Version None)
Quarter: 2006Q2

REPORT INFORMATION
  Report Type: 
  Country: None (occurrence: None)
  Receive Date: 20060616
  Receipt Date: 20060531
  Transmission Date: 20061013
  Serious: Yes (Life-Threatening, Hospitalization)
  Sender: FDA-Public Use
  Company Number: US200606000517

PATIENT
  Age: 72 Year
  Sex: Female

DRUGS (7)
  1. ZYPREXA [Suspect]
     Indication: BIPOLAR DISORDER
     Dosage: SEE IMAGE
  2. FORTEO [Suspect]
     Indication: OSTEOPOROSIS
     Dates: start: 20050817
  3. KLONOPIN [Concomitant]
  4. AMBIEN [Concomitant]
  5. PEPCID [Concomitant]
  6. ACIPHEX [Concomitant]
  7. RESTORIL [Concomitant]

REACTIONS (9)
  - DIZZINESS [None]
  - INJECTION SITE BRUISING [None]
  - LOSS OF CONSCIOUSNESS [None]
  - PHARMACEUTICAL PRODUCT COMPLAINT [None]
  - PHARYNGOLARYNGEAL PAIN [None]
  - PNEUMONIA [None]
  - PNEUMONIA ASPIRATION [None]
  - PNEUMONIA PRIMARY ATYPICAL [None]
  - WRIST FRACTURE [None]
